FAERS Safety Report 20765336 (Version 2)
Quarter: 2022Q2

REPORT INFORMATION
  Report Type: Spontaneous
  Country: US (occurrence: US)
  Receive Date: 20220428
  Receipt Date: 20220428
  Transmission Date: 20220721
  Serious: No
  Sender: FDA-Public Use
  Company Number: US-SANOFI-01072782

PATIENT
  Age: 75 Year
  Sex: Female

DRUGS (2)
  1. CAPRELSA [Suspect]
     Active Substance: VANDETANIB
     Indication: Thyroid cancer
     Dosage: 300 MG, QOD
     Dates: start: 20210930
  2. CAPRELSA [Suspect]
     Active Substance: VANDETANIB
     Dosage: 600 MG, QOD

REACTIONS (2)
  - Alopecia [Not Recovered/Not Resolved]
  - Intentional product misuse [Unknown]
